FAERS Safety Report 7386010-3 (Version None)
Quarter: 2011Q1

REPORT INFORMATION
  Report Type: 
  Country: None (occurrence: None)
  Receive Date: 20110331
  Receipt Date: 20110321
  Transmission Date: 20110831
  Serious: Yes (Other)
  Sender: FDA-Public Use
  Company Number: US-PERRIGO-11US002410

PATIENT
  Age: 28 Year
  Sex: Female
  Weight: 68.027 kg

DRUGS (1)
  1. NAPROXEN SODIUM 220 MG 490 [Suspect]
     Indication: INTENTIONAL OVERDOSE
     Dosage: 50-60 TABLETS, ONCE
     Route: 048
     Dates: start: 20110316, end: 20110316

REACTIONS (5)
  - INTENTIONAL OVERDOSE [None]
  - DIARRHOEA [None]
  - FREQUENT BOWEL MOVEMENTS [None]
  - DRUG EXPOSURE DURING PREGNANCY [None]
  - ABDOMINAL PAIN UPPER [None]
